FAERS Safety Report 8114307-8 (Version None)
Quarter: 2012Q1

REPORT INFORMATION
  Report Type: 
  Country: None (occurrence: None)
  Receive Date: 20120206
  Receipt Date: 20120127
  Transmission Date: 20120608
  Serious: Yes (Hospitalization)
  Sender: FDA-Public Use
  Company Number: US-BIOGENIDEC-2012BI003418

PATIENT
  Age: 65 Year
  Sex: Female

DRUGS (3)
  1. AVONEX [Suspect]
     Indication: MULTIPLE SCLEROSIS
     Route: 030
  2. MED [Concomitant]
  3. AVONEX [Suspect]
     Route: 030
     Dates: end: 20120101

REACTIONS (2)
  - DEPRESSION [None]
  - CONFUSIONAL STATE [None]
